FAERS Safety Report 4752455-0 (Version None)
Quarter: 2005Q3

REPORT INFORMATION
  Report Type: 
  Country: None (occurrence: None)
  Receive Date: 20050823
  Receipt Date: 20050810
  Transmission Date: 20060218
  Serious: Yes (Hospitalization)
  Sender: FDA-Public Use
  Company Number: 2005113218

PATIENT
  Age: 34 Year
  Sex: Female
  Weight: 49 kg

DRUGS (4)
  1. PREDNISONE [Suspect]
     Indication: BEHCET'S SYNDROME
     Dosage: 30 MG (30 MG, 1 IN 1 D)
     Dates: start: 20050220
  2. ETANERCEPT (ETANERCEPT) [Suspect]
     Indication: BEHCET'S SYNDROME
     Dosage: 25 MG, 2 IN 1 WK, SUBCUTANEOUS
     Route: 058
     Dates: start: 20050327, end: 20050718
  3. AZATHIOPRINE [Suspect]
     Indication: BEHCET'S SYNDROME
     Dosage: 100 MG (100 MG, 1 IN 1 D)
     Dates: start: 20050224
  4. COLCHICINE (COLCHICINE) [Concomitant]

REACTIONS (1)
  - PULMONARY TUBERCULOSIS [None]
